FAERS Safety Report 25874163 (Version 1)
Quarter: 2025Q4

REPORT INFORMATION
  Report Type: Spontaneous
  Country: US (occurrence: None)
  Receive Date: 20251002
  Receipt Date: 20251002
  Transmission Date: 20260118
  Serious: Yes (Hospitalization)
  Sender: FDA-CTU
  Company Number: None

PATIENT
  Sex: Female

DRUGS (2)
  1. TERIFLUNOMIDE [Suspect]
     Active Substance: TERIFLUNOMIDE
     Indication: Multiple sclerosis
     Dosage: TAKE 1 TABLET BY MOUTH DAILY
     Route: 048
     Dates: start: 20240731
  2. TERBINAFINE [Concomitant]
     Active Substance: TERBINAFINE

REACTIONS (1)
  - Kidney infection [None]
